FAERS Safety Report 5584425-7 (Version None)
Quarter: 2008Q1

REPORT INFORMATION
  Report Type: 
  Country: None (occurrence: None)
  Receive Date: 20080108
  Receipt Date: 20071217
  Transmission Date: 20080703
  Serious: Yes (Other)
  Sender: FDA-Public Use
  Company Number: CH-ELI_LILLY_AND_COMPANY-CH200711002739

PATIENT
  Age: 74 Year
  Sex: Female
  Weight: 74 kg

DRUGS (7)
  1. CYMBALTA [Suspect]
     Indication: DEPRESSION
     Dosage: 60 MG, DAILY (1/D)
     Route: 048
     Dates: start: 20061015
  2. DIOVAN [Concomitant]
     Indication: HYPERTENSION
     Dosage: 80 MG, DAILY (1/D)
     Route: 065
  3. DIOVAN [Concomitant]
     Dosage: 80 MG, 2/D
     Route: 065
  4. REMERON [Concomitant]
     Indication: DEPRESSION
     Dosage: 15 MG, DAILY (1/D)
     Route: 065
     Dates: start: 20061002
  5. ABILIFY [Concomitant]
     Indication: DEPRESSION
     Dosage: 5 MG, DAILY (1/D)
     Route: 065
     Dates: start: 20070627
  6. STILNOX [Concomitant]
     Indication: INSOMNIA
     Dosage: 12.5 MG, DAILY (1/D)
     Route: 065
  7. LORAZEPAM [Concomitant]
     Indication: DRUG DEPENDENCE
     Dosage: 0.5 MG, 3/D
     Route: 065

REACTIONS (1)
  - HYPERTENSION [None]
